FAERS Safety Report 7278716-1 (Version None)
Quarter: 2011Q1

REPORT INFORMATION
  Report Type: 
  Country: None (occurrence: None)
  Receive Date: 20110207
  Receipt Date: 20110203
  Transmission Date: 20110831
  Serious: Yes (Death, Hospitalization)
  Sender: FDA-Public Use
  Company Number: PHHY2011CN08102

PATIENT
  Age: 53 Year
  Sex: Female

DRUGS (3)
  1. LITHIUM [Suspect]
  2. CHLORPROMAZINE [Suspect]
  3. ALCOHOL [Suspect]

REACTIONS (2)
  - BRAIN OEDEMA [None]
  - OVERDOSE [None]
